FAERS Safety Report 22141162 (Version 20)
Quarter: 2025Q2

REPORT INFORMATION
  Report Type: Spontaneous
  Country: CA (occurrence: CA)
  Receive Date: 20230327
  Receipt Date: 20250604
  Transmission Date: 20250717
  Serious: Yes (Other)
  Sender: PFIZER
  Company Number: CA-PFIZER INC-202201193663

PATIENT
  Age: 63 Year
  Sex: Female

DRUGS (19)
  1. RUXIENCE [Suspect]
     Active Substance: RITUXIMAB-PVVR
     Indication: Rheumatoid arthritis
     Route: 042
     Dates: start: 20220927
  2. RUXIENCE [Suspect]
     Active Substance: RITUXIMAB-PVVR
     Route: 042
     Dates: start: 20221011
  3. RUXIENCE [Suspect]
     Active Substance: RITUXIMAB-PVVR
     Route: 042
     Dates: start: 20230413
  4. RUXIENCE [Suspect]
     Active Substance: RITUXIMAB-PVVR
     Route: 042
     Dates: start: 20230428
  5. RUXIENCE [Suspect]
     Active Substance: RITUXIMAB-PVVR
     Route: 042
     Dates: start: 20231116
  6. RUXIENCE [Suspect]
     Active Substance: RITUXIMAB-PVVR
     Route: 042
     Dates: start: 20240321
  7. RUXIENCE [Suspect]
     Active Substance: RITUXIMAB-PVVR
     Route: 042
     Dates: start: 20241003
  8. RUXIENCE [Suspect]
     Active Substance: RITUXIMAB-PVVR
     Route: 042
     Dates: start: 20241017
  9. RUXIENCE [Suspect]
     Active Substance: RITUXIMAB-PVVR
     Route: 042
     Dates: start: 20250521
  10. ACETAMINOPHEN [Concomitant]
     Active Substance: ACETAMINOPHEN
     Indication: Premedication
     Route: 048
     Dates: start: 20230413, end: 20230413
  11. ATROVENT [Concomitant]
     Active Substance: IPRATROPIUM BROMIDE
  12. DILTIAZEM [Concomitant]
     Active Substance: DILTIAZEM
     Indication: Atrial fibrillation
  13. DIPHENHYDRAMINE [Concomitant]
     Active Substance: DIPHENHYDRAMINE
     Indication: Premedication
     Route: 048
     Dates: start: 20230413, end: 20230413
  14. DIPHENHYDRAMINE [Concomitant]
     Active Substance: DIPHENHYDRAMINE
     Dates: start: 20250521, end: 20250521
  15. GRAVOL [Concomitant]
     Active Substance: DIMENHYDRINATE
     Route: 048
  16. HYDROCORTISONE [Concomitant]
     Active Substance: HYDROCORTISONE
     Indication: Premedication
     Route: 042
     Dates: start: 20230413, end: 20230413
  17. METHYLPREDNISOLONE [Concomitant]
     Active Substance: METHYLPREDNISOLONE
     Indication: Premedication
     Dates: start: 20250521, end: 20250521
  18. PREDNISONE [Concomitant]
     Active Substance: PREDNISONE
  19. VENTOLIN [Concomitant]
     Active Substance: ALBUTEROL SULFATE

REACTIONS (21)
  - Pneumonia [Recovering/Resolving]
  - Interstitial lung disease [Unknown]
  - Blood pressure decreased [Not Recovered/Not Resolved]
  - Oropharyngeal pain [Recovered/Resolved]
  - Ear pruritus [Recovered/Resolved]
  - Heart rate decreased [Not Recovered/Not Resolved]
  - Malaise [Unknown]
  - Productive cough [Unknown]
  - Chest pain [Unknown]
  - Dyspnoea [Unknown]
  - COVID-19 [Recovering/Resolving]
  - Influenza [Recovered/Resolved]
  - Ear pain [Unknown]
  - Ear infection [Unknown]
  - Condition aggravated [Unknown]
  - Sinusitis [Unknown]
  - Nasal disorder [Unknown]
  - Ear discomfort [Unknown]
  - Off label use [Unknown]
  - Product use issue [Unknown]
  - Product prescribing issue [Unknown]

NARRATIVE: CASE EVENT DATE: 20220927
